FAERS Safety Report 9432914 (Version 2)
Quarter: 2013Q3

REPORT INFORMATION
  Report Type: Spontaneous
  Country: FR (occurrence: None)
  Receive Date: 20130729
  Receipt Date: 20130909
  Transmission Date: 20140515
  Serious: Yes (Hospitalization, Disabling)
  Sender: FDA-Public Use
  Company Number: DSM-2013-00687

PATIENT
  Age: 45 Year
  Sex: Female

DRUGS (3)
  1. ALTEIS DUO [Suspect]
     Indication: HYPERTENSION
     Route: 048
     Dates: end: 201106
  2. MIRENA (LEVONOGESTREL) (LEVONOGESTREL) [Concomitant]
  3. MELODIA(ETHINYLESTRADIOL, GESTODENE) (TABLET) (ETHINYLESTRADIOL, GESTODENE) [Concomitant]

REACTIONS (8)
  - Intestinal villi atrophy [None]
  - Jaundice [None]
  - Weight decreased [None]
  - Autoimmune hepatitis [None]
  - Coeliac disease [None]
  - Hepatocellular injury [None]
  - Hypokalaemia [None]
  - Gastrointestinal inflammation [None]
